FAERS Safety Report 12241772 (Version 2)
Quarter: 2016Q2

REPORT INFORMATION
  Report Type: Report from Study
  Country: US (occurrence: US)
  Receive Date: 20160406
  Receipt Date: 20160609
  Transmission Date: 20160815
  Serious: Yes (Other)
  Sender: FDA-Public Use
  Company Number: US-JNJFOC-20160400193

PATIENT
  Age: 80 Year
  Sex: Female
  Weight: 72.58 kg

DRUGS (7)
  1. STELARA [Suspect]
     Active Substance: USTEKINUMAB
     Indication: PSORIASIS
     Route: 058
     Dates: start: 20160105
  2. DIOVAN [Concomitant]
     Active Substance: VALSARTAN
     Route: 065
  3. ESTRACE [Concomitant]
     Active Substance: ESTRADIOL
     Route: 065
  4. STELARA [Suspect]
     Active Substance: USTEKINUMAB
     Indication: PSORIATIC ARTHROPATHY
     Route: 058
     Dates: start: 20160209
  5. STELARA [Suspect]
     Active Substance: USTEKINUMAB
     Indication: PSORIATIC ARTHROPATHY
     Route: 058
     Dates: start: 20160105
  6. STELARA [Suspect]
     Active Substance: USTEKINUMAB
     Indication: PSORIASIS
     Route: 058
     Dates: start: 20160209
  7. LEVOTHROID [Concomitant]
     Active Substance: LEVOTHYROXINE SODIUM
     Route: 065

REACTIONS (7)
  - Weight decreased [Not Recovered/Not Resolved]
  - Headache [Unknown]
  - Corneal transplant [Unknown]
  - Transplant failure [Unknown]
  - Nausea [Unknown]
  - Eye infection [Unknown]
  - Keratorhexis [Unknown]

NARRATIVE: CASE EVENT DATE: 2016
